FAERS Safety Report 17531536 (Version 1)
Quarter: 2020Q1

REPORT INFORMATION
  Report Type: Report from Study
  Country: GB (occurrence: GB)
  Receive Date: 20200312
  Receipt Date: 20200312
  Transmission Date: 20200409
  Serious: Yes (Other)
  Sender: FDA-Public Use
  Company Number: GB-UCBSA-2020009442

PATIENT
  Age: 34 Year
  Sex: Female

DRUGS (2)
  1. FLUCLOXACILLIN [Suspect]
     Active Substance: FLUCLOXACILLIN
     Indication: RASH
     Dosage: RECEIVED FOR 6 DAYS
     Dates: start: 20200221, end: 20200226
  2. CERTOLIZUMAB PEGOL RA AUTOCLICKS [Suspect]
     Active Substance: CERTOLIZUMAB PEGOL
     Indication: RHEUMATOID ARTHRITIS
     Dosage: 400 MILLIGRAM, EV 2 WEEKS(QOW)
     Route: 058
     Dates: start: 20200120, end: 202002

REACTIONS (3)
  - Maternal exposure during pregnancy [Unknown]
  - Rash pruritic [Unknown]
  - Swelling face [Unknown]

NARRATIVE: CASE EVENT DATE: 202002
